FAERS Safety Report 7045120-0 (Version None)
Quarter: 2010Q4

REPORT INFORMATION
  Report Type: 
  Country: None (occurrence: None)
  Receive Date: 20101014
  Receipt Date: 20101005
  Transmission Date: 20110411
  Serious: Yes (Hospitalization)
  Sender: FDA-Public Use
  Company Number: US-MYLANLABS-2010S1018332

PATIENT
  Age: 55 Year
  Sex: Female
  Weight: 118.84 kg

DRUGS (6)
  1. HYDROCHLOROTHIAZIDE [Suspect]
     Indication: HYPERTENSION
     Route: 048
     Dates: start: 20090513, end: 20090723
  2. LISINOPRIL [Suspect]
     Indication: HYPERTENSION
     Route: 048
     Dates: start: 20090514, end: 20090723
  3. PAXIL [Concomitant]
     Dates: start: 20090101
  4. ABILIFY [Concomitant]
     Dates: start: 20090101
  5. CARDIZEM [Concomitant]
  6. VITAMIN TAB [Concomitant]

REACTIONS (1)
  - DEPRESSION [None]
